FAERS Safety Report 4314754-6 (Version None)
Quarter: 2004Q1

REPORT INFORMATION
  Report Type: 
  Country: None (occurrence: None)
  Receive Date: 20040308
  Receipt Date: 20040301
  Transmission Date: 20041129
  Serious: Yes (Other)
  Sender: FDA-Public Use
  Company Number: FR-JNJFOC-20040300283

PATIENT
  Age: 45 Year
  Sex: Female

DRUGS (2)
  1. SPORANOX [Suspect]
     Indication: PNEUMONIA ASPERGILLUS
     Dosage: 300 MG, 1 IN 1 DAY, ORAL
     Route: 048
     Dates: start: 20030101
  2. FLIXOTIDE (FLUTICASONE) [Concomitant]

REACTIONS (2)
  - CUSHING'S SYNDROME [None]
  - SECONDARY ADRENOCORTICAL INSUFFICIENCY [None]
